FAERS Safety Report 10310655 (Version 1)
Quarter: 2014Q3

REPORT INFORMATION
  Report Type: Spontaneous
  Country: US (occurrence: US)
  Receive Date: 20140717
  Receipt Date: 20140717
  Transmission Date: 20150326
  Serious: No
  Sender: FDA-Public Use
  Company Number: US-009507513-1407USA006430

PATIENT
  Sex: Male
  Weight: 111.11 kg

DRUGS (1)
  1. JANUVIA [Suspect]
     Active Substance: SITAGLIPTIN PHOSPHATE
     Indication: TYPE 2 DIABETES MELLITUS
     Dosage: 100 MG, ONCE A DAY, ORAL
     Route: 048
     Dates: start: 201205, end: 201212

REACTIONS (2)
  - Upper respiratory tract infection [Unknown]
  - Atypical pneumonia [Unknown]
